FAERS Safety Report 14761776 (Version 1)
Quarter: 2018Q2

REPORT INFORMATION
  Report Type: Spontaneous
  Country: US (occurrence: US)
  Receive Date: 20180416
  Receipt Date: 20180416
  Transmission Date: 20180711
  Serious: No
  Sender: FDA-Public Use
  Company Number: US-BION-006458

PATIENT
  Sex: Male

DRUGS (1)
  1. ALEVE [Suspect]
     Active Substance: NAPROXEN SODIUM
     Indication: CHEST PAIN
     Dosage: TOOK ONE LIQUID GEL AND THEN 2 HOURS LATER TOOK A SECOND
     Route: 048
     Dates: start: 20170626

REACTIONS (3)
  - Inappropriate schedule of drug administration [Not Recovered/Not Resolved]
  - Chest pain [Unknown]
  - Drug ineffective for unapproved indication [Not Recovered/Not Resolved]
